FAERS Safety Report 4309999-5 (Version None)
Quarter: 2004Q1

REPORT INFORMATION
  Report Type: 
  Country: None (occurrence: None)
  Receive Date: 20040227
  Receipt Date: 20031202
  Transmission Date: 20041129
  Serious: No
  Sender: FDA-Public Use
  Company Number: FABR-10393

PATIENT
  Age: 39 Year
  Sex: Male
  Weight: 75.5 kg

DRUGS (7)
  1. FABRAZYME [Suspect]
     Indication: FABRY'S DISEASE
     Dosage: 75.5 MG IV
     Route: 042
     Dates: start: 20030601
  2. ALLEGRA [Concomitant]
  3. IBUPROFEN [Concomitant]
  4. CELEXA [Concomitant]
  5. DILANTIN [Concomitant]
  6. NEURONTIN [Concomitant]
  7. PREVACID [Concomitant]

REACTIONS (8)
  - BLOOD PRESSURE INCREASED [None]
  - CHEST DISCOMFORT [None]
  - ERYTHEMA [None]
  - PARAESTHESIA [None]
  - PERIORBITAL OEDEMA [None]
  - PITTING OEDEMA [None]
  - PRURITUS [None]
  - URTICARIA [None]
